FAERS Safety Report 4766039-1 (Version None)
Quarter: 2005Q3

REPORT INFORMATION
  Report Type: 
  Country: None (occurrence: None)
  Receive Date: 20050912
  Receipt Date: 20050903
  Transmission Date: 20060218
  Serious: Yes (Disabling)
  Sender: FDA-Public Use
  Company Number: GB-GLAXOSMITHKLINE-B0392710A

PATIENT
  Age: 56 Year
  Sex: Female
  Weight: 57 kg

DRUGS (3)
  1. PAROXETINE [Suspect]
     Indication: DEPRESSION
     Route: 048
     Dates: start: 19990101, end: 20050701
  2. CLARITHROMYCIN [Concomitant]
     Indication: ACNE
     Dosage: 250MG PER DAY
     Route: 048
     Dates: start: 19910101
  3. PREMPAK-C [Concomitant]
     Indication: HORMONE REPLACEMENT THERAPY
     Route: 048
     Dates: start: 19950101

REACTIONS (4)
  - ABNORMAL DREAMS [None]
  - DEREALISATION [None]
  - DIZZINESS [None]
  - MOOD ALTERED [None]
